FAERS Safety Report 11895755 (Version 1)
Quarter: 2016Q1

REPORT INFORMATION
  Report Type: Spontaneous
  Country: CA (occurrence: CA)
  Receive Date: 20160107
  Receipt Date: 20160107
  Transmission Date: 20160526
  Serious: Yes (Life-Threatening, Hospitalization, Other)
  Sender: FDA-Public Use
  Company Number: CA-TEVA-622334ACC

PATIENT
  Age: 36 Year
  Sex: Male
  Weight: 77 kg

DRUGS (3)
  1. PAROXETINE [Concomitant]
     Active Substance: PAROXETINE\PAROXETINE HYDROCHLORIDE
  2. TEVA-QUETIAPINE [Suspect]
     Active Substance: QUETIAPINE
     Indication: DEPRESSION
     Dosage: 25 MILLIGRAM DAILY;
     Route: 048
  3. TEVA-QUETIAPINE [Suspect]
     Active Substance: QUETIAPINE
     Indication: ANXIETY

REACTIONS (6)
  - Respiratory arrest [Unknown]
  - Dizziness [Unknown]
  - Apallic syndrome [Unknown]
  - Somnolence [Unknown]
  - Cardiac arrest [Unknown]
  - Sinus tachycardia [Unknown]
